FAERS Safety Report 9189822 (Version 3)
Quarter: 2013Q2

REPORT INFORMATION
  Report Type: Spontaneous
  Country: US (occurrence: US)
  Receive Date: 20130326
  Receipt Date: 20130514
  Transmission Date: 20140414
  Serious: Yes (Other)
  Sender: FDA-Public Use
  Company Number: US-PFIZER INC-2013096380

PATIENT
  Age: 33 Year
  Sex: Male
  Weight: 74.8 kg

DRUGS (1)
  1. DOSTINEX [Suspect]
     Indication: PITUITARY TUMOUR BENIGN
     Dosage: 0.5 MG, 3X/WEEK
     Dates: start: 201206, end: 2012

REACTIONS (4)
  - Deafness [Not Recovered/Not Resolved]
  - Hair disorder [Not Recovered/Not Resolved]
  - Blood prolactin increased [Recovering/Resolving]
  - Otoacoustic emissions test abnormal [Unknown]
